FAERS Safety Report 5347178-3 (Version None)
Quarter: 2007Q2

REPORT INFORMATION
  Report Type: 
  Country: None (occurrence: None)
  Receive Date: 20070606
  Receipt Date: 20070529
  Transmission Date: 20071010
  Serious: Yes (Hospitalization, Other)
  Sender: FDA-Public Use
  Company Number: PHEH2007US05731

PATIENT
  Age: 47 Year
  Sex: Female

DRUGS (1)
  1. ZELNORM [Suspect]
     Indication: CONSTIPATION
     Dosage: 6 MG, ONCE/SINGLE
     Route: 048
     Dates: start: 20070101, end: 20070101

REACTIONS (5)
  - ABDOMINAL PAIN [None]
  - COLD SWEAT [None]
  - DYSPNOEA [None]
  - HYPERTENSION [None]
  - VOMITING [None]
